FAERS Safety Report 25141456 (Version 1)
Quarter: 2025Q1

REPORT INFORMATION
  Report Type: Spontaneous
  Country: US (occurrence: US)
  Receive Date: 20250331
  Receipt Date: 20250331
  Transmission Date: 20250409
  Serious: No
  Sender: SANOFI AVENTIS
  Company Number: US-SA-2025SA088742

PATIENT
  Age: 83 Year
  Sex: Female

DRUGS (2)
  1. DUPIXENT [Suspect]
     Active Substance: DUPILUMAB
     Indication: Eczema
     Route: 058
     Dates: start: 202402, end: 202402
  2. DUPIXENT [Suspect]
     Active Substance: DUPILUMAB
     Dosage: 300 MG, QOW
     Route: 058
     Dates: start: 2024

REACTIONS (10)
  - Vision blurred [Unknown]
  - Condition aggravated [Unknown]
  - Swelling of eyelid [Unknown]
  - Condition aggravated [Unknown]
  - Rash [Unknown]
  - Erythema [Unknown]
  - Skin burning sensation [Unknown]
  - Pain [Unknown]
  - Pruritus [Unknown]
  - Skin irritation [Unknown]
